FAERS Safety Report 8237081-3 (Version None)
Quarter: 2012Q1

REPORT INFORMATION
  Report Type: 
  Country: None (occurrence: None)
  Receive Date: 20120326
  Receipt Date: 20120326
  Transmission Date: 20120608
  Serious: Yes (Disabling)
  Sender: FDA-Public Use
  Company Number: None

PATIENT
  Sex: Female
  Weight: 56.246 kg

DRUGS (1)
  1. LEVAQUIN [Suspect]
     Indication: ANTIBIOTIC THERAPY
     Dosage: 500 MG
     Dates: start: 20110322

REACTIONS (4)
  - PAIN IN EXTREMITY [None]
  - TENDON DISORDER [None]
  - DISCOMFORT [None]
  - MUSCLE DISORDER [None]
